FAERS Safety Report 22150366 (Version 3)
Quarter: 2023Q2

REPORT INFORMATION
  Report Type: Report from Study
  Country: SG (occurrence: SG)
  Receive Date: 20230329
  Receipt Date: 20230414
  Transmission Date: 20230721
  Serious: Yes (Hospitalization)
  Sender: FDA-Public Use
  Company Number: SG-002147023-NVSC2023SG062107

PATIENT
  Age: 68 Year
  Sex: Female
  Weight: 43.3 kg

DRUGS (4)
  1. TRAMETINIB [Suspect]
     Active Substance: TRAMETINIB
     Indication: Colorectal cancer
     Dosage: 2 MG, OM
     Route: 048
     Dates: start: 20230225, end: 20230316
  2. TRAMETINIB [Suspect]
     Active Substance: TRAMETINIB
     Indication: Adenocarcinoma pancreas
  3. RUXOLITINIB [Suspect]
     Active Substance: RUXOLITINIB
     Indication: Colorectal cancer
     Dosage: 10 MG, BID
     Route: 048
     Dates: start: 20230225, end: 20230316
  4. RUXOLITINIB [Suspect]
     Active Substance: RUXOLITINIB
     Indication: Adenocarcinoma pancreas

REACTIONS (2)
  - Glaucoma [Recovered/Resolved]
  - Biliary tract infection [Recovered/Resolved]

NARRATIVE: CASE EVENT DATE: 20230316
